FAERS Safety Report 9202031 (Version 3)
Quarter: 2013Q2

REPORT INFORMATION
  Report Type: Spontaneous
  Country: US (occurrence: None)
  Receive Date: 20130328
  Receipt Date: 20130524
  Transmission Date: 20140414
  Serious: Yes (Hospitalization, Other)
  Sender: FDA-Public Use
  Company Number: JPI-P-030720

PATIENT
  Age: 37 Year
  Sex: Female
  Weight: 53.52 kg

DRUGS (21)
  1. XYREM (500 MILLIGRAM/MILLILITERS, SOLUTION) (SODIUM OXYBATE) [Suspect]
     Indication: CATAPLEXY
     Dosage: 7.5 GM (3.75 GM, 2 IN 1 D), ORAL
     Route: 048
     Dates: start: 200406
  2. ROZEREM [Concomitant]
  3. PHENTERMINE [Concomitant]
  4. MILNACIPRAN [Concomitant]
  5. PROBIOTIC PRODUCT [Concomitant]
  6. BISOPROLOL FUMARATE [Concomitant]
  7. FLUDROCORTISONE [Concomitant]
  8. ONDANSETRON [Concomitant]
  9. POLYETHYLENE GLYCOL [Concomitant]
  10. PSYLLIUM [Concomitant]
  11. RIZATRIPTAN [Concomitant]
  12. BISACODYL [Concomitant]
  13. ESOMEPRAZOLE MAGNESIUM [Concomitant]
  14. LOPERAMIDE HCL [Concomitant]
  15. PHENTERMINE [Concomitant]
  16. CREON 12 [Concomitant]
  17. DOCUSATE SODIUM [Concomitant]
  18. ARIPIPRAZOLE [Concomitant]
  19. POTASSIUM [Concomitant]
  20. FENTANYL [Suspect]
     Indication: PRODUCT USED FOR UNKNOWN INDICATION
     Dosage: 7.5 GMS, (3.75 GMS 2 IN 1 D,ORAL.
  21. OXYCODONE [Suspect]
     Indication: PRODUCT USED FOR UNKNOWN INDICATION

REACTIONS (11)
  - Malaise [None]
  - Aphagia [None]
  - Fluid intake reduced [None]
  - Weight decreased [None]
  - Weight increased [None]
  - Neck pain [None]
  - Tremor [None]
  - Fatigue [None]
  - Blepharospasm [None]
  - Dysphagia [None]
  - Apnoea [None]
